FAERS Safety Report 16361457 (Version 3)
Quarter: 2020Q1

REPORT INFORMATION
  Report Type: Spontaneous
  Country: US (occurrence: US)
  Receive Date: 20190528
  Receipt Date: 20200220
  Transmission Date: 20200409
  Serious: Yes (Hospitalization)
  Sender: FDA-Public Use
  Company Number: US-PFIZER INC-2019005401

PATIENT
  Age: 33 Year
  Sex: Female
  Weight: 106.5 kg

DRUGS (2)
  1. SOMAVERT [Suspect]
     Active Substance: PEGVISOMANT
     Indication: GIGANTISM
     Dosage: 30 MG, 1X/DAY
     Dates: end: 2019
  2. SOMAVERT [Suspect]
     Active Substance: PEGVISOMANT
     Indication: ACROMEGALY
     Dosage: 20 MG, DAILY
     Route: 058
     Dates: start: 2006, end: 2012

REACTIONS (8)
  - Condition aggravated [Unknown]
  - Bipolar disorder [Unknown]
  - Drug ineffective [Unknown]
  - Intentional product misuse [Unknown]
  - Depression [Unknown]
  - Insulin-like growth factor increased [Unknown]
  - Schizophrenia [Unknown]
  - Bone disorder [Unknown]

NARRATIVE: CASE EVENT DATE: 2012
